FAERS Safety Report 8796739 (Version 1)
Quarter: 2012Q4

REPORT INFORMATION
  Report Type: Report from Study
  Country: HU (occurrence: HU)
  Receive Date: 20120917
  Receipt Date: 20120917
  Transmission Date: 20130627
  Serious: Yes (Other)
  Sender: FDA-Public Use
  Company Number: HU-ROCHE-1124317

PATIENT
  Sex: Male
  Weight: 100 kg

DRUGS (1)
  1. XELODA [Suspect]
     Indication: COLORECTAL CANCER
     Dosage: Dose: 2 x 5
     Route: 048
     Dates: start: 20090106, end: 200907

REACTIONS (2)
  - Nephritis [Unknown]
  - Drug ineffective [Unknown]
